FAERS Safety Report 6492978-X (Version None)
Quarter: 2009Q4

REPORT INFORMATION
  Report Type: 
  Country: None (occurrence: None)
  Receive Date: 20091211
  Receipt Date: 20091211
  Transmission Date: 20100525
  Serious: Yes (Hospitalization)
  Sender: FDA-Public Use
  Company Number: None

PATIENT
  Age: 52 Year
  Sex: Male
  Weight: 70.14 kg

DRUGS (2)
  1. PEGINTERFERON [Suspect]
     Dosage: 96 MCG QWEEK SQ
     Route: 058
     Dates: start: 20090707, end: 20090715
  2. RIBAVIRIN [Suspect]
     Dosage: 96 MCG Q WEEK SQ
     Route: 058
     Dates: start: 20090707, end: 20090715

REACTIONS (1)
  - DIARRHOEA [None]
